FAERS Safety Report 9527702 (Version 1)
Quarter: 2013Q1

REPORT INFORMATION
  Report Type: Spontaneous
  Country: US (occurrence: None)
  Receive Date: 20130314
  Receipt Date: 20130314
  Transmission Date: 20140127
  Serious: No
  Sender: FDA-Public Use
  Company Number: 1210USA0011554

PATIENT
  Age: 36 Year
  Sex: Female

DRUGS (3)
  1. PEG-INTRON (PEGINTERFERON ALFA-2B) POWDER FOR INJECTION [Suspect]
     Indication: HEPATITIS C
     Route: 058
     Dates: start: 20121013
  2. REBETOL [Suspect]
     Indication: HEPATITIS C
     Route: 048
     Dates: start: 20121013
  3. VICTRELIS (BOCEPREVIR) CAPSULE [Suspect]
     Dates: start: 20121117

REACTIONS (4)
  - Pain [None]
  - Asthenia [None]
  - Urticaria [None]
  - Dysgeusia [None]
